FAERS Safety Report 9464551 (Version 3)
Quarter: 2013Q4

REPORT INFORMATION
  Report Type: Spontaneous
  Country: CH (occurrence: CH)
  Receive Date: 20130819
  Receipt Date: 20131115
  Transmission Date: 20140711
  Serious: Yes (Other)
  Sender: FDA-Public Use
  Company Number: CH-JNJFOC-20130806619

PATIENT
  Age: 62 Year
  Sex: Female
  Weight: 43 kg

DRUGS (8)
  1. RISPERDAL QUICKLET [Suspect]
     Indication: SCHIZOAFFECTIVE DISORDER
     Route: 065
     Dates: start: 20130210, end: 20130219
  2. RISPERDAL QUICKLET [Suspect]
     Indication: SCHIZOAFFECTIVE DISORDER
     Route: 065
     Dates: start: 20130220
  3. ABILIFY [Suspect]
     Indication: SCHIZOAFFECTIVE DISORDER
     Route: 065
     Dates: start: 20130404, end: 20130611
  4. ABILIFY [Suspect]
     Indication: SCHIZOAFFECTIVE DISORDER
     Route: 065
     Dates: start: 20130210, end: 20130403
  5. CLOPIXOL [Concomitant]
     Indication: SCHIZOAFFECTIVE DISORDER
     Route: 065
     Dates: start: 20130210
  6. PSYCHOPAX [Concomitant]
     Indication: SCHIZOAFFECTIVE DISORDER
     Route: 065
     Dates: start: 20130210, end: 20130716
  7. ATROPA BELLADONNA [Concomitant]
     Indication: SCHIZOAFFECTIVE DISORDER
     Route: 065
     Dates: start: 20130511, end: 20130517
  8. MAGNESIOCARD [Concomitant]
     Indication: SCHIZOAFFECTIVE DISORDER
     Route: 065
     Dates: start: 20130326, end: 20130716

REACTIONS (3)
  - Inappropriate antidiuretic hormone secretion [Not Recovered/Not Resolved]
  - Hyponatraemia [Unknown]
  - Treatment noncompliance [Unknown]
